FAERS Safety Report 5449028-3 (Version None)
Quarter: 2007Q3

REPORT INFORMATION
  Report Type: 
  Country: None (occurrence: None)
  Receive Date: 20070803
  Receipt Date: 20070426
  Transmission Date: 20080115
  Serious: No
  Sender: FDA-Public Use
  Company Number: 200711200BWH

PATIENT
  Sex: Male

DRUGS (7)
  1. NEXAVAR [Suspect]
     Indication: HEPATIC NEOPLASM MALIGNANT
     Dosage: 400 MG, BID, ORAL; 200 MG, BID, ORAL; 200 MG, BID, ORAL
     Route: 048
     Dates: start: 20070301, end: 20070412
  2. NEXAVAR [Suspect]
     Indication: HEPATIC NEOPLASM MALIGNANT
     Dosage: 400 MG, BID, ORAL; 200 MG, BID, ORAL; 200 MG, BID, ORAL
     Route: 048
     Dates: start: 20070308
  3. NEXAVAR [Suspect]
     Indication: HEPATIC NEOPLASM MALIGNANT
     Dosage: 400 MG, BID, ORAL; 200 MG, BID, ORAL; 200 MG, BID, ORAL
     Route: 048
     Dates: start: 20070425
  4. FUROSEMIDE [Concomitant]
  5. FELODIPINE [Concomitant]
  6. LISINOPRIL [Concomitant]
  7. POTASSIUM CHLORIDE [Concomitant]

REACTIONS (2)
  - BREAST SWELLING [None]
  - NIPPLE DISORDER [None]
